FAERS Safety Report 5703885-1 (Version None)
Quarter: 2008Q2

REPORT INFORMATION
  Report Type: 
  Country: None (occurrence: None)
  Receive Date: 20080414
  Receipt Date: 20080404
  Transmission Date: 20081010
  Serious: Yes (Death)
  Sender: FDA-Public Use
  Company Number: NO-ELI_LILLY_AND_COMPANY-NO200804001342

PATIENT
  Sex: Male

DRUGS (3)
  1. ZYPREXA [Suspect]
     Indication: SCHIZOPHRENIFORM DISORDER
     Dosage: 10 MG, DAILY (1/D)
     Route: 048
     Dates: start: 20020101
  2. ZANIDIP [Concomitant]
     Indication: HYPERTENSION
     Dosage: 10 MG, DAILY (1/D)
     Route: 048
     Dates: start: 20060101
  3. DIOVAN COMP [Concomitant]
     Indication: HYPERTENSION
     Dosage: 1 TABLET (160/12.5), DAILY (1/D)
     Route: 048
     Dates: start: 20050101

REACTIONS (1)
  - DEATH [None]
